FAERS Safety Report 6440328-7 (Version None)
Quarter: 2009Q4

REPORT INFORMATION
  Report Type: 
  Country: None (occurrence: None)
  Receive Date: 20091113
  Receipt Date: 20091030
  Transmission Date: 20100525
  Serious: Yes (Hospitalization)
  Sender: FDA-Public Use
  Company Number: PHHY2009VE47471

PATIENT
  Sex: Female

DRUGS (1)
  1. ACLASTA [Suspect]
     Indication: OSTEOPOROSIS
     Dosage: 5MG/YEAR
     Route: 042
     Dates: start: 20090819

REACTIONS (3)
  - DISCOMFORT [None]
  - FALL [None]
  - FRACTURE [None]
